FAERS Safety Report 16885089 (Version 4)
Quarter: 2020Q3

REPORT INFORMATION
  Report Type: Report from Study
  Country: US (occurrence: US)
  Receive Date: 20191004
  Receipt Date: 20191101
  Transmission Date: 20201105
  Serious: Yes (Hospitalization)
  Sender: FDA-Public Use
  Company Number: US-PFIZER INC-2019428791

PATIENT
  Age: 77 Year
  Sex: Female

DRUGS (71)
  1. ISOSORBIDE MONONITRATE. [Concomitant]
     Active Substance: ISOSORBIDE MONONITRATE
     Indication: CORONARY ARTERY DISEASE
  2. IMODIUM [Concomitant]
     Active Substance: LOPERAMIDE HYDROCHLORIDE
     Indication: DIARRHOEA
     Dosage: 2 MG, UNK
     Route: 048
  3. PREVACID [Concomitant]
     Active Substance: LANSOPRAZOLE
     Indication: GASTROOESOPHAGEAL REFLUX DISEASE
     Dosage: 30 MG, UNK
     Route: 048
     Dates: start: 20180606
  4. SLOW?MAG [Concomitant]
     Active Substance: MAGNESIUM CHLORIDE
     Dosage: 2 DF, UNK
     Route: 048
     Dates: start: 20181213
  5. VAGISIL [BENZOCAINE] [Concomitant]
     Dosage: UNK
  6. FERROUS SULFATE. [Concomitant]
     Active Substance: FERROUS SULFATE
     Dosage: 324 MG, UNK
     Route: 048
     Dates: start: 20190921, end: 20190926
  7. PALBOCICLIB [Suspect]
     Active Substance: PALBOCICLIB
     Indication: BREAST CANCER
     Dosage: 125 MG, CYCLIC  (ON DAYS 1?21 OF EACH CYCLE.
     Route: 048
     Dates: start: 20180424
  8. PALBOCICLIB [Suspect]
     Active Substance: PALBOCICLIB
     Dosage: 75 MG, CYCLIC  (MOST RECENT DOSE PRIOR TO EVENT)
     Route: 048
  9. ONDANSETRON [Concomitant]
     Active Substance: ONDANSETRON
     Indication: NAUSEA
     Dosage: 8 MG, UNK
     Route: 048
     Dates: start: 20180425
  10. ISOSORBIDE. [Concomitant]
     Active Substance: ISOSORBIDE
     Indication: DYSPNOEA
     Dosage: 120 MG, UNK
     Route: 048
     Dates: start: 20180827
  11. COLLAGENASE SANTYL [Concomitant]
     Active Substance: COLLAGENASE CLOSTRIDIUM HISTOLYTICUM
     Dosage: UNK (250 UNIT NOT REPORTED)
     Route: 061
     Dates: start: 20180927
  12. COLLAGENASE SANTYL [Concomitant]
     Active Substance: COLLAGENASE CLOSTRIDIUM HISTOLYTICUM
     Dosage: UNK
     Route: 061
     Dates: start: 20190822
  13. VALTREX [Concomitant]
     Active Substance: VALACYCLOVIR HYDROCHLORIDE
     Indication: ULCER
     Dosage: 1 G, UNK
     Route: 048
     Dates: start: 20190201
  14. AZITHROMYCIN ANHYDROUS. [Concomitant]
     Active Substance: AZITHROMYCIN ANHYDROUS
     Indication: PNEUMONIA
     Dosage: 500 MG, UNK
     Route: 048
     Dates: start: 20190827, end: 20190828
  15. AZITHROMYCIN ANHYDROUS. [Concomitant]
     Active Substance: AZITHROMYCIN ANHYDROUS
     Indication: PNEUMONIA
     Dosage: 500 MG, UNK
     Route: 042
     Dates: start: 20190827, end: 20190827
  16. POTASSIUM CHLORIDE. [Concomitant]
     Active Substance: POTASSIUM CHLORIDE
     Dosage: UNK (80OTHER)
     Route: 048
     Dates: start: 20190921, end: 20190921
  17. INAVOLISIB. [Suspect]
     Active Substance: INAVOLISIB
     Dosage: 6 MG, CYCLIC (LAST DOSE ADMINISTERED PRIOR TO ADVERSE EVENT)
     Route: 048
  18. ALBUTEROL [SALBUTAMOL] [Concomitant]
     Active Substance: ALBUTEROL
     Indication: DYSPNOEA
     Dosage: 90 UG, UNK
     Route: 045
     Dates: start: 20161124
  19. AMLODIPINE [Concomitant]
     Active Substance: AMLODIPINE BESYLATE
     Indication: HYPERTENSION
     Dosage: 10 MG, UNK
     Route: 048
     Dates: start: 20180305
  20. ASPIRIN [ACETYLSALICYLIC ACID] [Concomitant]
     Active Substance: ASPIRIN
     Dosage: 81 MG, UNK
     Route: 048
     Dates: start: 20160318
  21. ISOSORBIDE MONONITRATE. [Concomitant]
     Active Substance: ISOSORBIDE MONONITRATE
     Indication: DYSPNOEA
     Dosage: 120 MG, UNK
     Route: 048
     Dates: start: 20170825
  22. FLUTICASONE. [Concomitant]
     Active Substance: FLUTICASONE
     Indication: DYSPNOEA
     Dosage: 50 UG, UNK
     Route: 045
     Dates: start: 20180423
  23. ATIVAN [Concomitant]
     Active Substance: LORAZEPAM
     Indication: ANXIETY
     Dosage: 0.5 MG, UNK
     Route: 048
     Dates: start: 20180424
  24. ATIVAN [Concomitant]
     Active Substance: LORAZEPAM
     Indication: INSOMNIA
  25. FAMOTIDINE. [Concomitant]
     Active Substance: FAMOTIDINE
     Indication: GASTROOESOPHAGEAL REFLUX DISEASE
     Dosage: 20 MG, UNK
     Route: 048
     Dates: start: 20190218
  26. DAKINS FULL [Concomitant]
     Active Substance: SODIUM HYPOCHLORITE
     Indication: ULCER
     Dosage: UNK
     Route: 061
     Dates: start: 20190201
  27. METFORMIN [Concomitant]
     Active Substance: METFORMIN HYDROCHLORIDE
     Indication: HYPERGLYCAEMIA
     Dosage: 1000 MG, UNK
     Dates: start: 20180702
  28. COLLAGENASE SANTYL [Concomitant]
     Active Substance: COLLAGENASE CLOSTRIDIUM HISTOLYTICUM
     Indication: SKIN ULCER
     Dosage: UNK (250 UNIT NOT REPORTED)
     Route: 061
     Dates: start: 20181004, end: 20190827
  29. HYDROMORPHONE [Concomitant]
     Active Substance: HYDROMORPHONE
     Indication: PAIN
     Dosage: 24 MG, UNK
     Route: 048
     Dates: start: 20190108
  30. MAGNESIUM SULFATE. [Concomitant]
     Active Substance: MAGNESIUM SULFATE
     Indication: SUPPLEMENTATION THERAPY
     Dosage: 2 G, UNK
     Route: 042
     Dates: start: 20190827, end: 20190828
  31. FUROSEMIDE. [Concomitant]
     Active Substance: FUROSEMIDE
     Dosage: 20 MG, UNK
     Route: 042
     Dates: start: 20190829, end: 20190829
  32. FUROSEMIDE. [Concomitant]
     Active Substance: FUROSEMIDE
     Indication: CARDIAC FAILURE
     Dosage: 20 MG, UNK (60 MG)
     Route: 042
     Dates: start: 20190921, end: 20190921
  33. BENZOCAINE. [Concomitant]
     Active Substance: BENZOCAINE
     Indication: SUPPORTIVE CARE
     Dosage: (6 UNIT NOT REPORTED)
     Route: 048
     Dates: start: 20190925, end: 20190926
  34. LEVALBUTEROL [LEVOSALBUTAMOL HYDROCHLORIDE] [Concomitant]
     Active Substance: LEVALBUTEROL HYDROCHLORIDE
     Indication: DYSPNOEA
     Dosage: 4 DF, UNK
     Route: 055
     Dates: start: 20190921, end: 20190926
  35. SILVADENE [Concomitant]
     Active Substance: SILVER SULFADIAZINE
     Indication: RASH MACULO-PAPULAR
     Dosage: 1 %, UNK
     Route: 061
     Dates: start: 20180326
  36. BUDESONIDE/FORMOTEROL [Concomitant]
     Indication: ASTHMA
     Dosage: 80 UG, UNK
     Route: 055
     Dates: start: 20170731
  37. FAMOTIDINE. [Concomitant]
     Active Substance: FAMOTIDINE
     Indication: DYSPEPSIA
     Dosage: 40 MG, UNK
     Route: 048
     Dates: start: 20180425
  38. IMDUR [Concomitant]
     Active Substance: ISOSORBIDE MONONITRATE
     Indication: HYPERTENSION
     Dosage: 120 MG, UNK
     Route: 048
     Dates: start: 20180605
  39. IMURAN [Concomitant]
     Active Substance: AZATHIOPRINE
     Indication: HYPERTENSION
     Dosage: 120 MG, UNK
     Route: 048
  40. XARELTO [Concomitant]
     Active Substance: RIVAROXABAN
     Dosage: 15 MG, UNK
     Route: 048
     Dates: start: 20181026
  41. AZELASTINE. [Concomitant]
     Active Substance: AZELASTINE HYDROCHLORIDE
     Indication: UPPER-AIRWAY COUGH SYNDROME
     Dosage: 1 DF, UNK
     Route: 045
     Dates: start: 20190503
  42. MAGNESIUM SULFATE. [Concomitant]
     Active Substance: MAGNESIUM SULFATE
     Dosage: 2 G, UNK
     Route: 042
     Dates: start: 20190922, end: 20190922
  43. FUROSEMIDE. [Concomitant]
     Active Substance: FUROSEMIDE
     Indication: CARDIAC FAILURE
     Dosage: 20 MG, UNK (40 MG)
     Route: 048
     Dates: start: 20190924, end: 20190924
  44. VITAMIN D [VITAMIN D NOS] [Concomitant]
     Active Substance: VITAMIN D NOS
     Dosage: UNK
  45. INAVOLISIB. [Suspect]
     Active Substance: INAVOLISIB
     Indication: BREAST CANCER
     Dosage: UNK, CYCLIC (EVERY DAY ON DAYS 1?28 OF EACH CYCLE)
     Route: 048
     Dates: start: 20180424
  46. IPRATROPIUM BROMIDE. [Concomitant]
     Active Substance: IPRATROPIUM BROMIDE
     Dosage: 2.5 MG, UNK
     Route: 055
     Dates: start: 20190921, end: 20190926
  47. LIDOCAINE/PRILOCAINE [Concomitant]
     Dosage: 2.5 %, UNK
     Route: 061
     Dates: start: 20180619
  48. CEFTRIAXONE. [Concomitant]
     Active Substance: CEFTRIAXONE
     Indication: PNEUMONIA
     Dosage: 1 G, UNK
     Route: 042
     Dates: start: 20190827, end: 20190828
  49. FUROSEMIDE. [Concomitant]
     Active Substance: FUROSEMIDE
     Dosage: 20 MG, UNK (40 MG)
     Route: 048
     Dates: start: 20190925, end: 20190926
  50. FUROSEMIDE. [Concomitant]
     Active Substance: FUROSEMIDE
     Indication: OEDEMA
     Dosage: 20 MG, UNK (60 MG)
     Route: 042
     Dates: start: 20190921, end: 20190926
  51. OXYCODONE [Concomitant]
     Active Substance: OXYCODONE
     Indication: PAIN
     Dosage: 10 DF, UNK
     Route: 048
     Dates: start: 20180312
  52. IPRATROPIUM BROMIDE. [Concomitant]
     Active Substance: IPRATROPIUM BROMIDE
     Indication: DYSPNOEA
     Dosage: 17 UG, UNK
     Route: 055
     Dates: start: 20161124
  53. SPIRIVA [Concomitant]
     Active Substance: TIOTROPIUM BROMIDE MONOHYDRATE
     Indication: DYSPNOEA
     Dosage: 18 UG, UNK
     Route: 055
     Dates: start: 20171018
  54. BACTROBAN [Concomitant]
     Active Substance: MUPIROCIN\MUPIROCIN CALCIUM
     Indication: LOCALISED INFECTION
     Dosage: 2 %, UNK
     Route: 061
     Dates: start: 20180717
  55. FUROSEMIDE. [Concomitant]
     Active Substance: FUROSEMIDE
     Indication: OEDEMA
     Dosage: 20 MG, UNK (40 MG)
     Route: 048
     Dates: start: 20190922, end: 20190923
  56. BISACODYL. [Concomitant]
     Active Substance: BISACODYL
     Indication: CONSTIPATION
     Dosage: 10 MG, UNK
     Dates: start: 20190926, end: 20190926
  57. LIDOCAINE. [Concomitant]
     Active Substance: LIDOCAINE
     Indication: PAIN
     Dosage: UNK (3 OTHER)
     Route: 061
     Dates: start: 20190921, end: 20190926
  58. MAGNESIUM OXIDE. [Concomitant]
     Active Substance: MAGNESIUM OXIDE
     Indication: MINERAL SUPPLEMENTATION
     Dosage: 800 MG, UNK
     Route: 048
     Dates: start: 20190921, end: 20190921
  59. POLYETHYLENE GLYCOL 3350. [Concomitant]
     Active Substance: POLYETHYLENE GLYCOL 3350
     Indication: CONSTIPATION
     Dosage: 17 G, UNK
     Route: 048
     Dates: start: 20190923, end: 20190923
  60. INAVOLISIB. [Suspect]
     Active Substance: INAVOLISIB
     Dosage: 75 MG, CYCLIC (MOST RECENT DOSE)
     Route: 048
     Dates: end: 20190815
  61. LETROZOLE. [Suspect]
     Active Substance: LETROZOLE
     Indication: BREAST CANCER
     Dosage: 2.5 MG, CYCLIC  (EVERY DAY ON DAYS 1?28 OF EACH CYCLE)
     Route: 048
     Dates: start: 20180424
  62. ATENOLOL. [Concomitant]
     Active Substance: ATENOLOL
     Indication: HYPERTENSION
     Dosage: 100 MG, UNK
     Route: 048
     Dates: start: 20180122
  63. ZYRTEC [Concomitant]
     Active Substance: CETIRIZINE HYDROCHLORIDE
     Indication: UPPER-AIRWAY COUGH SYNDROME
     Dosage: 10 MG, UNK
     Route: 048
     Dates: start: 20180424
  64. PEPCID [Concomitant]
     Active Substance: FAMOTIDINE
     Indication: GASTROOESOPHAGEAL REFLUX DISEASE
     Dosage: UNK
     Route: 065
  65. SITAGLIPTIN [Concomitant]
     Active Substance: SITAGLIPTIN
     Indication: HYPERGLYCAEMIA
     Dosage: 100 MG, UNK
     Route: 048
     Dates: start: 20180511
  66. JARDIANCE [Concomitant]
     Active Substance: EMPAGLIFLOZIN
     Indication: HYPERGLYCAEMIA
     Dosage: 10 MG, UNK
     Route: 048
     Dates: start: 20180529
  67. CEFADROXIL. [Concomitant]
     Active Substance: CEFADROXIL
     Indication: CONTUSION
     Dosage: 1000 MG, UNK
     Route: 065
     Dates: start: 20180717
  68. LIDODERM [Concomitant]
     Active Substance: LIDOCAINE
     Indication: PAIN
     Dosage: 5 %, UNK
     Route: 061
     Dates: start: 20181010
  69. ENOXAPARIN [Concomitant]
     Active Substance: ENOXAPARIN
     Indication: OEDEMA PERIPHERAL
     Dosage: UNK
     Route: 065
  70. SIMETHICONE (DIMETHICONE) [Concomitant]
     Active Substance: DIMETHICONE
     Indication: DYSPEPSIA
     Dosage: 80 MG, UNK
     Route: 048
     Dates: start: 20190827, end: 20190829
  71. COLLAGENASE [Concomitant]
     Active Substance: COLLAGENASE CLOSTRIDIUM HISTOLYTICUM
     Dosage: UNK

REACTIONS (1)
  - Pulmonary oedema [Not Recovered/Not Resolved]

NARRATIVE: CASE EVENT DATE: 20190920
